FAERS Safety Report 7713750-6 (Version None)
Quarter: 2011Q3

REPORT INFORMATION
  Report Type: 
  Country: None (occurrence: None)
  Receive Date: 20110826
  Receipt Date: 20110824
  Transmission Date: 20111222
  Serious: No
  Sender: FDA-Public Use
  Company Number: US-PFIZER INC-2011196716

PATIENT
  Age: 46 Year
  Sex: Female

DRUGS (1)
  1. ADVIL MIGRAINE LIQUI-GELS [Suspect]
     Indication: MIGRAINE
     Dosage: UNK
     Route: 048
     Dates: start: 20110824

REACTIONS (4)
  - BURNING SENSATION [None]
  - THROAT IRRITATION [None]
  - GLOSSODYNIA [None]
  - WRONG TECHNIQUE IN DRUG USAGE PROCESS [None]
